FAERS Safety Report 12461034 (Version 2)
Quarter: 2016Q2

REPORT INFORMATION
  Report Type: Spontaneous
  Country: US (occurrence: US)
  Receive Date: 20160613
  Receipt Date: 20160616
  Transmission Date: 20160815
  Serious: No
  Sender: FDA-Public Use
  Company Number: US-MDT-ADR-2016-01071

PATIENT
  Age: 64 Year
  Sex: Female

DRUGS (5)
  1. OXYCODONE [Concomitant]
     Active Substance: OXYCODONE
  2. PRIALT [Suspect]
     Active Substance: ZICONOTIDE ACETATE
     Route: 037
  3. COMPOUNDED BACLOFEN [Suspect]
     Active Substance: BACLOFEN
     Dosage: 17.9MCG/DAY
     Route: 037
  4. CLONIDINE. [Suspect]
     Active Substance: CLONIDINE
     Route: 037
  5. FENTANYL. [Suspect]
     Active Substance: FENTANYL
     Route: 037

REACTIONS (2)
  - Pain [Unknown]
  - No therapeutic response [Unknown]
